FAERS Safety Report 4830230-6 (Version None)
Quarter: 2005Q4

REPORT INFORMATION
  Report Type: 
  Country: None (occurrence: None)
  Receive Date: 20051117
  Receipt Date: 20050913
  Transmission Date: 20060501
  Serious: Yes (Other)
  Sender: FDA-Public Use
  Company Number: CA-GLAXOSMITHKLINE-A0574317A

PATIENT
  Age: 61 Year
  Sex: Female
  Weight: 79.5 kg

DRUGS (5)
  1. PAXIL CR [Suspect]
     Indication: DEPRESSION
     Dosage: 37.5MG PER DAY
     Route: 048
     Dates: start: 20040701, end: 20040801
  2. PAROXETINE HCL [Concomitant]
     Indication: DEPRESSION
     Dates: start: 20040501, end: 20040601
  3. WELLBUTRIN SR [Concomitant]
     Indication: DEPRESSION
  4. LIPITOR [Concomitant]
  5. PREMARIN [Concomitant]
     Indication: MENOPAUSE

REACTIONS (5)
  - ANXIETY [None]
  - FLUSHING [None]
  - HEADACHE [None]
  - HYPERHIDROSIS [None]
  - VITREOUS FLOATERS [None]
